FAERS Safety Report 11296854 (Version 1)
Quarter: 2015Q3

REPORT INFORMATION
  Report Type: Spontaneous
  Country: US (occurrence: US)
  Receive Date: 20150722
  Receipt Date: 20150722
  Transmission Date: 20151125
  Serious: Yes (Hospitalization, Other)
  Sender: FDA-Public Use
  Company Number: US-ELI_LILLY_AND_COMPANY-US201008006313

PATIENT
  Age: 63 Year
  Sex: Female

DRUGS (5)
  1. ACTONEL [Concomitant]
     Active Substance: RISEDRONATE SODIUM
     Dosage: 35 MG, WEEKLY (1/W)
     Route: 048
  2. ASPIRIN. [Concomitant]
     Active Substance: ASPIRIN
     Dosage: 325 MG, DAILY (1/D)
     Route: 048
  3. RANITIDINE [Concomitant]
     Active Substance: RANITIDINE\RANITIDINE HYDROCHLORIDE
     Dosage: 150 MG, 2/D
     Route: 048
  4. EVISTA [Suspect]
     Active Substance: RALOXIFENE HYDROCHLORIDE
     Dosage: 60 MG, UNK
     Dates: start: 20061212
  5. INFLUENZA H1N1 VACCINE NOS [Concomitant]
     Active Substance: INFLUENZA VIRUS VACCINE, SWINE
     Dosage: 0.5 ML, UNK
     Dates: start: 20091230

REACTIONS (2)
  - Thrombosis [Recovering/Resolving]
  - Ischaemic stroke [Recovering/Resolving]
